FAERS Safety Report 7457666-1 (Version None)
Quarter: 2011Q2

REPORT INFORMATION
  Report Type: 
  Country: None (occurrence: None)
  Receive Date: 20110504
  Receipt Date: 20110502
  Transmission Date: 20111010
  Serious: No
  Sender: FDA-Public Use
  Company Number: US-TEVA-279378USA

PATIENT
  Sex: Male

DRUGS (1)
  1. COPAXONE [Suspect]
     Route: 058
     Dates: start: 20110502

REACTIONS (2)
  - MUSCLE TWITCHING [None]
  - INJECTION SITE REACTION [None]
